FAERS Safety Report 15691829 (Version 1)
Quarter: 2018Q4

REPORT INFORMATION
  Report Type: Other
  Country: CN (occurrence: CN)
  Receive Date: 20181205
  Receipt Date: 20181205
  Transmission Date: 20190205
  Serious: Yes (Other)
  Sender: FDA-Public Use
  Company Number: CN-GEHC-2018CSU004866

PATIENT

DRUGS (1)
  1. OMNISCAN [Suspect]
     Active Substance: GADODIAMIDE
     Indication: GASTROINTESTINAL DISORDER
     Dosage: 18 ML, SINGLE
     Route: 042
     Dates: start: 20180817, end: 20180817

REACTIONS (3)
  - Pruritus [Recovering/Resolving]
  - Swelling [Recovering/Resolving]
  - Ocular discomfort [Recovering/Resolving]

NARRATIVE: CASE EVENT DATE: 20180817
